FAERS Safety Report 5143083-6 (Version None)
Quarter: 2006Q4

REPORT INFORMATION
  Report Type: 
  Country: None (occurrence: None)
  Receive Date: 20061101
  Receipt Date: 20061101
  Transmission Date: 20070319
  Serious: Yes (Hospitalization)
  Sender: FDA-Public Use
  Company Number: None

PATIENT
  Sex: Male
  Weight: 122 kg

DRUGS (6)
  1. METHOTREXATE [Suspect]
     Dosage: 19 G
  2. RITUXIMAB (MOAB C2B8 ANTI CD20, CHIMERIC) [Suspect]
  3. LEUCOVORIN CALCIUM [Suspect]
     Dosage: 2160 MG
  4. ASPIRIN [Concomitant]
  5. LOVENOX [Concomitant]
  6. ACTIVASE [Concomitant]

REACTIONS (1)
  - HAEMOPNEUMOTHORAX [None]
